FAERS Safety Report 8458003-6 (Version None)
Quarter: 2012Q2

REPORT INFORMATION
  Report Type: 
  Country: None (occurrence: None)
  Receive Date: 20120622
  Receipt Date: 20120619
  Transmission Date: 20120825
  Serious: Yes (Other)
  Sender: FDA-Public Use
  Company Number: US-SANOFI-AVENTIS-2012SA044051

PATIENT
  Age: 92 Year
  Sex: Male

DRUGS (2)
  1. LISINOPRIL [Suspect]
  2. LANTUS [Suspect]
     Dosage: DOSE:12 UNIT(S)
     Route: 058
     Dates: start: 20090101

REACTIONS (1)
  - THROMBOCYTOPENIA [None]
